FAERS Safety Report 9441609 (Version 1)
Quarter: 2013Q3

REPORT INFORMATION
  Report Type: Spontaneous
  Country: AU (occurrence: AU)
  Receive Date: 20130806
  Receipt Date: 20130806
  Transmission Date: 20140515
  Serious: Yes (Death, Life-Threatening, Hospitalization, Other)
  Sender: FDA-Public Use
  Company Number: AU-JNJFOC-20130719133

PATIENT
  Sex: 0

DRUGS (2)
  1. PARACETAMOL [Suspect]
     Route: 065
  2. PARACETAMOL [Suspect]
     Indication: ANALGESIC THERAPY
     Route: 065

REACTIONS (4)
  - Accidental overdose [Fatal]
  - Intentional overdose [Fatal]
  - Overdose [Fatal]
  - Drug-induced liver injury [Fatal]
